FAERS Safety Report 20414424 (Version 7)
Quarter: 2022Q4

REPORT INFORMATION
  Report Type: Report from Study
  Country: BR (occurrence: BR)
  Receive Date: 20220202
  Receipt Date: 20221202
  Transmission Date: 20230113
  Serious: Yes (Other)
  Sender: FDA-Public Use
  Company Number: BR-JNJFOC-20220152410

PATIENT
  Age: 68 Year
  Sex: Female
  Weight: 81 kg

DRUGS (3)
  1. SIMPONI [Suspect]
     Active Substance: GOLIMUMAB
     Indication: Rheumatoid arthritis
     Dosage: PATIENT STARTED USING THE PRODUCT AGAIN ON 13-MAY-2022
     Route: 058
     Dates: start: 20190416
  2. SIMPONI [Suspect]
     Active Substance: GOLIMUMAB
     Dosage: ALSO MENTION AS MAY-2019
     Route: 058
     Dates: start: 20190406
  3. COVID-19 VACCINE [Concomitant]
     Indication: Immunisation

REACTIONS (7)
  - COVID-19 pneumonia [Unknown]
  - Diabetes mellitus [Unknown]
  - Urinary tract infection [Unknown]
  - Influenza [Unknown]
  - Pain [Unknown]
  - Varicose vein [Unknown]
  - Joint swelling [Unknown]

NARRATIVE: CASE EVENT DATE: 20220101
